FAERS Safety Report 5846105-X (Version None)
Quarter: 2008Q3

REPORT INFORMATION
  Report Type: 
  Country: None (occurrence: None)
  Receive Date: 20080814
  Receipt Date: 20080804
  Transmission Date: 20090109
  Serious: Yes (Other)
  Sender: FDA-Public Use
  Company Number: JP-PFIZER INC-2008065168

PATIENT
  Age: 13 Year
  Sex: Female

DRUGS (2)
  1. GENOTROPIN [Suspect]
     Indication: GROWTH HORMONE DEFICIENCY
     Dosage: DAILY DOSE:.7MG-FREQ:DAY
     Route: 058
  2. CHEMOTHERAPY NOS [Concomitant]

REACTIONS (1)
  - EPILEPSY [None]
